FAERS Safety Report 8625477-7 (Version None)
Quarter: 2012Q3

REPORT INFORMATION
  Report Type: 
  Country: None (occurrence: None)
  Receive Date: 20120827
  Receipt Date: 20120816
  Transmission Date: 20120928
  Serious: Yes (Other)
  Sender: FDA-Public Use
  Company Number: US-ROCHE-1034501

PATIENT
  Sex: Female

DRUGS (1)
  1. ACCUTANE [Suspect]
     Indication: ACNE CYSTIC

REACTIONS (5)
  - COLITIS ULCERATIVE [None]
  - LIP DRY [None]
  - ARTHRALGIA [None]
  - INFLAMMATORY BOWEL DISEASE [None]
  - ANXIETY [None]
